FAERS Safety Report 5567066-7 (Version None)
Quarter: 2007Q4

REPORT INFORMATION
  Report Type: 
  Country: None (occurrence: None)
  Receive Date: 20071219
  Receipt Date: 20060413
  Transmission Date: 20080405
  Serious: Yes (Death, Other)
  Sender: FDA-Public Use
  Company Number: DE-ROCHE-445036

PATIENT
  Age: 23 Year
  Sex: Male

DRUGS (1)
  1. VALCYTE [Suspect]
     Route: 048
     Dates: start: 20050107

REACTIONS (2)
  - DEATH [None]
  - PNEUMONIA [None]
